FAERS Safety Report 14332686 (Version 1)
Quarter: 2017Q4

REPORT INFORMATION
  Report Type: Spontaneous
  Country: None (occurrence: DE)
  Receive Date: 20171228
  Receipt Date: 20171228
  Transmission Date: 20180321
  Serious: Yes (Other)
  Sender: FDA-Public Use
  Company Number: DE-MEDAC PHARMA, INC.-2037909

PATIENT
  Sex: Female

DRUGS (1)
  1. METEX (METHOTREXATE DISODIUM) [Suspect]
     Active Substance: METHOTREXATE SODIUM

REACTIONS (1)
  - Carcinoembryonic antigen increased [Unknown]
